FAERS Safety Report 11121041 (Version 1)
Quarter: 2015Q2

REPORT INFORMATION
  Report Type: Spontaneous
  Country: US (occurrence: None)
  Receive Date: 20150518
  Receipt Date: 20150518
  Transmission Date: 20150821
  Serious: Yes (Other)
  Sender: FDA-Public Use
  Company Number: None

PATIENT
  Age: 73 Year
  Sex: Male

DRUGS (1)
  1. TICE BCG [Suspect]
     Active Substance: BACILLUS CALMETTE-GUERIN SUBSTRAIN TICE LIVE ANTIGEN
     Indication: BLADDER CANCER
     Dosage: 50MG (1 VIAL) EVERY 7 DAYS
     Route: 043
     Dates: start: 20140924, end: 20150515

REACTIONS (2)
  - Influenza like illness [None]
  - Fatigue [None]

NARRATIVE: CASE EVENT DATE: 201411
